FAERS Safety Report 12162339 (Version 1)
Quarter: 2016Q1

REPORT INFORMATION
  Report Type: Spontaneous
  Country: US (occurrence: None)
  Receive Date: 20160308
  Receipt Date: 20160308
  Transmission Date: 20160526
  Serious: Yes (Disabling)
  Sender: FDA-Public Use
  Company Number: None

PATIENT
  Age: 16 Year
  Sex: Male
  Weight: 117.94 kg

DRUGS (5)
  1. MELOXICAM 15 MG CIPLA USA.INC [Suspect]
     Active Substance: MELOXICAM
     Indication: JOINT INJURY
     Dosage: 1 PILL ONCE DAILY TAKEN BY MOUTH
     Route: 048
     Dates: start: 20151209, end: 20160109
  2. TRAMADOL. [Concomitant]
     Active Substance: TRAMADOL
  3. MELOXICAM 15 MG CIPLA USA.INC [Suspect]
     Active Substance: MELOXICAM
     Indication: PAIN
     Dosage: 1 PILL ONCE DAILY TAKEN BY MOUTH
     Route: 048
     Dates: start: 20151209, end: 20160109
  4. OMEPRAXOLE [Concomitant]
  5. SODIUM CHLORIDE. [Concomitant]
     Active Substance: SODIUM CHLORIDE

REACTIONS (14)
  - Haematochezia [None]
  - Balance disorder [None]
  - Gastritis [None]
  - Educational problem [None]
  - Paraesthesia [None]
  - Gait disturbance [None]
  - Dyspnoea [None]
  - Muscular weakness [None]
  - Device malfunction [None]
  - Fatigue [None]
  - Headache [None]
  - Hypoaesthesia [None]
  - Disturbance in attention [None]
  - Dizziness [None]

NARRATIVE: CASE EVENT DATE: 20160307
